FAERS Safety Report 20200884 (Version 1)
Quarter: 2021Q4

REPORT INFORMATION
  Report Type: Spontaneous
  Country: US (occurrence: None)
  Receive Date: 20211217
  Receipt Date: 20211217
  Transmission Date: 20220303
  Serious: No
  Sender: FDA-Public Use
  Company Number: None

PATIENT

DRUGS (2)
  1. PRASUGREL [Suspect]
     Active Substance: PRASUGREL
     Route: 048
  2. EFFIENT [Suspect]
     Active Substance: PRASUGREL HYDROCHLORIDE
     Route: 048

REACTIONS (3)
  - Packaging design issue [None]
  - Product label issue [None]
  - Circumstance or information capable of leading to medication error [None]
